FAERS Safety Report 9006785 (Version 2)
Quarter: 2013Q4

REPORT INFORMATION
  Report Type: Report from Study
  Country: AR (occurrence: AR)
  Receive Date: 20130110
  Receipt Date: 20131226
  Transmission Date: 20140711
  Serious: Yes (Life-Threatening, Other)
  Sender: FDA-Public Use
  Company Number: PHHY2013AR002131

PATIENT
  Age: 67 Year
  Sex: Male

DRUGS (3)
  1. DIOVAN [Suspect]
     Indication: BLOOD PRESSURE ABNORMAL
     Dosage: 1 DF (160 MG), PER DAY
     Route: 048
  2. DIOVAN [Suspect]
     Dosage: 1 DF (160 MG), PER DAY
     Route: 048
  3. CIPROFLOXACIN [Concomitant]

REACTIONS (7)
  - Penis disorder [Unknown]
  - Feeling abnormal [Unknown]
  - Infection [Unknown]
  - Arthritis infective [Unknown]
  - Joint swelling [Unknown]
  - Blood pressure systolic decreased [Unknown]
  - Cardiovascular disorder [Unknown]
